FAERS Safety Report 7649754-1 (Version None)
Quarter: 2011Q3

REPORT INFORMATION
  Report Type: 
  Country: None (occurrence: None)
  Receive Date: 20110802
  Receipt Date: 20110720
  Transmission Date: 20111222
  Serious: Yes (Other)
  Sender: FDA-Public Use
  Company Number: US-ELI_LILLY_AND_COMPANY-US201107006194

PATIENT
  Sex: Female

DRUGS (6)
  1. LEXAPRO [Concomitant]
     Dosage: 60 MG, UNK
  2. UNSPECIFIED HERBAL [Concomitant]
  3. LEXAPRO [Concomitant]
     Dosage: 40 MG, UNK
  4. STRATTERA [Suspect]
     Indication: OBSESSIVE-COMPULSIVE DISORDER
     Dosage: 60 MG, UNK
     Dates: start: 20070101
  5. RITALIN [Concomitant]
     Dosage: 60 MG, UNK
  6. THYROID THERAPY [Concomitant]

REACTIONS (5)
  - THYROIDECTOMY [None]
  - LIVER FUNCTION TEST ABNORMAL [None]
  - OFF LABEL USE [None]
  - PALPITATIONS [None]
  - DYSPNOEA [None]
